FAERS Safety Report 16743329 (Version 2)
Quarter: 2019Q3

REPORT INFORMATION
  Report Type: Report from Study
  Country: None (occurrence: CA)
  Receive Date: 20190827
  Receipt Date: 20190828
  Transmission Date: 20191005
  Serious: Yes (Other)
  Sender: FDA-Public Use
  Company Number: CA-ABBVIE-19K-028-2899663-00

PATIENT
  Age: 53 Year
  Sex: Female

DRUGS (1)
  1. HUMIRA [Suspect]
     Active Substance: ADALIMUMAB
     Indication: CROHN^S DISEASE
     Route: 058
     Dates: start: 20171014

REACTIONS (15)
  - Impaired work ability [Unknown]
  - Flatulence [Unknown]
  - Anal incontinence [Unknown]
  - Intestinal obstruction [Unknown]
  - Gastrointestinal sounds abnormal [Unknown]
  - Hypophagia [Unknown]
  - Abdominal adhesions [Unknown]
  - Therapeutic response shortened [Unknown]
  - Defaecation urgency [Unknown]
  - Abdominal pain [Unknown]
  - Abdominal pain [Unknown]
  - Post-traumatic stress disorder [Unknown]
  - Denture stomatitis [Unknown]
  - Quality of life decreased [Unknown]
  - Frequent bowel movements [Unknown]

NARRATIVE: CASE EVENT DATE: 2019
